FAERS Safety Report 5191996-1 (Version None)
Quarter: 2006Q4

REPORT INFORMATION
  Report Type: 
  Country: None (occurrence: None)
  Receive Date: 20061220
  Receipt Date: 20061205
  Transmission Date: 20070319
  Serious: Yes (Other)
  Sender: FDA-Public Use
  Company Number: 15053

PATIENT
  Age: 51 Year
  Sex: Female

DRUGS (3)
  1. AMIODARONE HCL [Suspect]
     Indication: ATRIAL FIBRILLATION
  2. FRUSEMIDE [Concomitant]
  3. SPIRONOLACTONE [Concomitant]

REACTIONS (1)
  - BRUGADA SYNDROME [None]
